FAERS Safety Report 15108135 (Version 2)
Quarter: 2018Q3

REPORT INFORMATION
  Report Type: Spontaneous
  Country: US (occurrence: US)
  Receive Date: 20180705
  Receipt Date: 20180903
  Transmission Date: 20181010
  Serious: Yes (Death, Other)
  Sender: FDA-Public Use
  Company Number: US-ROCHE-2148525

PATIENT
  Age: 81 Year
  Sex: Male

DRUGS (1)
  1. ESBRIET [Suspect]
     Active Substance: PIRFENIDONE
     Indication: IDIOPATHIC PULMONARY FIBROSIS
     Route: 048
     Dates: start: 20161202, end: 20180607

REACTIONS (3)
  - Idiopathic pulmonary fibrosis [Fatal]
  - Cardiac arrest [Unknown]
  - Pneumonia [Fatal]

NARRATIVE: CASE EVENT DATE: 20180617
